FAERS Safety Report 21492444 (Version 3)
Quarter: 2023Q2

REPORT INFORMATION
  Report Type: Spontaneous
  Country: US (occurrence: US)
  Receive Date: 20221021
  Receipt Date: 20230620
  Transmission Date: 20230721
  Serious: No
  Sender: FDA-Public Use
  Company Number: US-SA-SAC20221017000628

PATIENT
  Age: 74 Year
  Sex: Male
  Weight: 97.5 kg

DRUGS (32)
  1. DUPIXENT [Suspect]
     Active Substance: DUPILUMAB
     Indication: Chronic rhinosinusitis with nasal polyps
     Dosage: 300 MG, QOW
     Route: 058
     Dates: start: 202006, end: 20230531
  2. DUPIXENT [Suspect]
     Active Substance: DUPILUMAB
     Indication: Illness
  3. ADVAIR HFA [Concomitant]
     Active Substance: FLUTICASONE PROPIONATE\SALMETEROL XINAFOATE
  4. ADVIL [Concomitant]
     Active Substance: IBUPROFEN
  5. AMBIEN [Concomitant]
     Active Substance: ZOLPIDEM TARTRATE
  6. ASPIRIN [Concomitant]
     Active Substance: ASPIRIN
  7. CIPROFLOXACIN [Concomitant]
     Active Substance: CIPROFLOXACIN
  8. COREG [Concomitant]
     Active Substance: CARVEDILOL
  9. FIBER [Concomitant]
  10. FLUTICASONE PROPIONATE [Concomitant]
     Active Substance: FLUTICASONE PROPIONATE
  11. IBUPROFEN [Concomitant]
     Active Substance: IBUPROFEN
  12. IPRATROPIUM BROMIDE [Concomitant]
     Active Substance: IPRATROPIUM BROMIDE\IPRATROPIUM BROMIDE ANHYDROUS
  13. JARDIANCE [Concomitant]
     Active Substance: EMPAGLIFLOZIN
  14. LEVOTHYROXINE SODIUM [Concomitant]
     Active Substance: LEVOTHYROXINE SODIUM
  15. LIPITOR [Concomitant]
     Active Substance: ATORVASTATIN CALCIUM
  16. LOSARTAN POTASSIUM [Concomitant]
     Active Substance: LOSARTAN POTASSIUM
  17. MELATONIN [Concomitant]
     Active Substance: MELATONIN
  18. OLOPATADINE HYDROCHLORIDE [Concomitant]
     Active Substance: OLOPATADINE HYDROCHLORIDE
  19. PANTOPRAZOLE [Concomitant]
     Active Substance: PANTOPRAZOLE
  20. PLAVIX [Concomitant]
     Active Substance: CLOPIDOGREL BISULFATE
  21. PROAIR HFA [Concomitant]
     Active Substance: ALBUTEROL SULFATE
  22. PROMETHAZINE HYDROCHLORIDE [Concomitant]
     Active Substance: PROMETHAZINE HYDROCHLORIDE
  23. SERTRALINE HYDROCHLORIDE [Concomitant]
     Active Substance: SERTRALINE HYDROCHLORIDE
  24. SINGULAIR [Concomitant]
     Active Substance: MONTELUKAST SODIUM
  25. TYLENOL [Concomitant]
     Active Substance: ACETAMINOPHEN
  26. CYANOCOBALAMIN [Concomitant]
     Active Substance: CYANOCOBALAMIN
  27. VITAMIN D2 [Concomitant]
     Active Substance: ERGOCALCIFEROL
  28. VITAMIN D3 [Concomitant]
     Active Substance: CHOLECALCIFEROL
  29. ZINC [Concomitant]
     Active Substance: ZINC
  30. PFIZER-BIONTECH COVID-19 VACCINE [Concomitant]
     Active Substance: TOZINAMERAN
  31. VITAMIN C [Concomitant]
     Active Substance: ASCORBIC ACID
  32. HYQVIA [Concomitant]
     Active Substance: HUMAN IMMUNOGLOBULIN G\HYALURONIDASE RECOMBINANT HUMAN
     Dosage: UNK

REACTIONS (6)
  - COVID-19 [Unknown]
  - Procedural pain [Unknown]
  - Vomiting [Unknown]
  - Viral infection [Unknown]
  - Sinusitis [Unknown]
  - Surgery [Unknown]

NARRATIVE: CASE EVENT DATE: 20220701
